FAERS Safety Report 7029579-0 (Version None)
Quarter: 2010Q4

REPORT INFORMATION
  Report Type: 
  Country: None (occurrence: None)
  Receive Date: 20101005
  Receipt Date: 20100930
  Transmission Date: 20110411
  Serious: Yes (Hospitalization)
  Sender: FDA-Public Use
  Company Number: FR-MERCK-1006FRA00121

PATIENT
  Age: 48 Year
  Sex: Male

DRUGS (4)
  1. ISENTRESS [Suspect]
     Indication: HIV INFECTION
     Route: 048
     Dates: start: 20090901, end: 20100629
  2. EMTRICITABINE AND TENOFOVIR DISOPROXIL FUMARATE [Concomitant]
     Indication: HIV INFECTION
     Route: 048
  3. CLOPIDOGREL BISULFATE [Concomitant]
     Indication: CEREBROVASCULAR ACCIDENT
     Route: 048
  4. ROSUVASTATIN CALCIUM [Concomitant]
     Route: 048
     Dates: end: 20100301

REACTIONS (3)
  - CHOLELITHIASIS [None]
  - PANCREATITIS [None]
  - TRANSAMINASES INCREASED [None]
